FAERS Safety Report 10504854 (Version 2)
Quarter: 2014Q4

REPORT INFORMATION
  Report Type: Spontaneous
  Country: US (occurrence: None)
  Receive Date: 20140929
  Receipt Date: 20141224
  Transmission Date: 20150528
  Serious: Yes (Hospitalization, Other)
  Sender: FDA-Public Use
  Company Number: US-2014-12189

PATIENT
  Age: 25 Year
  Sex: Male

DRUGS (3)
  1. ABILIFY [Concomitant]
     Active Substance: ARIPIPRAZOLE
  2. BENZOTROPINE (BENZATROPINE MESILATE) [Concomitant]
  3. ABILIFY MAINTENA [Suspect]
     Active Substance: ARIPIPRAZOLE
     Indication: SCHIZOPHRENIA
     Dosage: 400 MG MILLGRAM(S), ONCE Q 20 25 DAYS, IM (DEPOT)
     Route: 030
     Dates: start: 2000

REACTIONS (2)
  - Neuroleptic malignant syndrome [None]
  - Off label use [None]

NARRATIVE: CASE EVENT DATE: 2014
